FAERS Safety Report 14007325 (Version 4)
Quarter: 2017Q4

REPORT INFORMATION
  Report Type: Report from Study
  Country: BE (occurrence: BE)
  Receive Date: 20170925
  Receipt Date: 20171123
  Transmission Date: 20180321
  Serious: Yes (Hospitalization)
  Sender: FDA-Public Use
  Company Number: BE-ROCHE-1991908

PATIENT
  Age: 80 Year
  Sex: Male
  Weight: 69.5 kg

DRUGS (14)
  1. DAFALGAN [Concomitant]
     Active Substance: ACETAMINOPHEN
     Route: 048
  2. PRAVASTATIN. [Concomitant]
     Active Substance: PRAVASTATIN
     Route: 048
  3. PARACETAMOL [Concomitant]
     Active Substance: ACETAMINOPHEN
     Indication: BACK PAIN
     Route: 042
     Dates: start: 20170930, end: 20171009
  4. LITICAN [Concomitant]
     Active Substance: ALIZAPRIDE HYDROCHLORIDE
     Indication: PROPHYLAXIS
     Route: 048
  5. LITICAN [Concomitant]
     Active Substance: ALIZAPRIDE HYDROCHLORIDE
     Route: 042
     Dates: start: 20170930, end: 20171009
  6. LAXOBERON [Concomitant]
     Active Substance: SODIUM PICOSULFATE
     Dosage: DROPS
     Route: 048
     Dates: start: 20171004, end: 20171005
  7. DUROGESIC [Concomitant]
     Active Substance: FENTANYL
     Indication: BACK PAIN
     Route: 062
  8. DUROGESIC [Concomitant]
     Active Substance: FENTANYL
     Route: 062
     Dates: start: 20170926, end: 20170929
  9. XGEVA [Concomitant]
     Active Substance: DENOSUMAB
     Indication: PROPHYLAXIS
     Route: 058
  10. DUROGESIC [Concomitant]
     Active Substance: FENTANYL
     Route: 062
     Dates: start: 20170930
  11. ATEZOLIZUMAB. [Suspect]
     Active Substance: ATEZOLIZUMAB
     Indication: MALIGNANT URINARY TRACT NEOPLASM
     Dosage: DATE OF MOST RECENT DOSE PRIOR TO SERIOUS ADVERSE EVENT WAS ON 25/JUL/2017
     Route: 042
     Dates: start: 20170725
  12. ZINACEF [Concomitant]
     Active Substance: CEFUROXIME SODIUM
     Indication: URINARY TRACT INFECTION
     Route: 042
     Dates: start: 20171002, end: 20171009
  13. OXYNORM [Concomitant]
     Active Substance: OXYCODONE HYDROCHLORIDE
     Indication: BACK PAIN
     Route: 048
     Dates: start: 20170104, end: 20170925
  14. OXYNORM [Concomitant]
     Active Substance: OXYCODONE HYDROCHLORIDE
     Dosage: 40 UNIT NOT REPORTED
     Route: 048
     Dates: start: 20170926

REACTIONS (1)
  - Erysipelas [Recovered/Resolved]

NARRATIVE: CASE EVENT DATE: 20170811
